FAERS Safety Report 16784700 (Version 1)
Quarter: 2019Q3

REPORT INFORMATION
  Report Type: Spontaneous
  Country: US (occurrence: US)
  Receive Date: 20190909
  Receipt Date: 20190909
  Transmission Date: 20191005
  Serious: Yes (Hospitalization)
  Sender: FDA-Public Use
  Company Number: PHHY2019US205706

PATIENT
  Age: 75 Year
  Sex: Male

DRUGS (2)
  1. METRONIDAZOLE. [Concomitant]
     Active Substance: METRONIDAZOLE
     Indication: DIVERTICULITIS
     Dosage: 2 G, QD
     Route: 065
  2. LEVOFLOXACIN. [Suspect]
     Active Substance: LEVOFLOXACIN
     Indication: DIVERTICULITIS
     Dosage: 750 MG, QD
     Route: 048

REACTIONS (7)
  - Muscle strain [Recovering/Resolving]
  - Haematoma muscle [Recovering/Resolving]
  - Oedema peripheral [Recovering/Resolving]
  - Weight bearing difficulty [Recovering/Resolving]
  - Joint range of motion decreased [Recovering/Resolving]
  - Swelling [Recovering/Resolving]
  - Pain [Recovering/Resolving]
